FAERS Safety Report 14488293 (Version 1)
Quarter: 2018Q1

REPORT INFORMATION
  Report Type: Spontaneous
  Country: US (occurrence: US)
  Receive Date: 20180205
  Receipt Date: 20180205
  Transmission Date: 20180509
  Serious: Yes (Hospitalization)
  Sender: FDA-Public Use
  Company Number: US-FRESENIUS MEDICAL CARE RENAL THERAPIES GROUP-FMC-1801-000180

PATIENT
  Sex: Male
  Weight: 80 kg

DRUGS (11)
  1. NORVASC [Concomitant]
     Active Substance: AMLODIPINE BESYLATE
  2. RENVELA [Concomitant]
     Active Substance: SEVELAMER CARBONATE
  3. VIREAD [Concomitant]
     Active Substance: TENOFOVIR DISOPROXIL FUMARATE
  4. NEXAVAR [Concomitant]
     Active Substance: SORAFENIB
  5. DELFLEX [Suspect]
     Active Substance: CALCIUM CHLORIDE\DEXTROSE\MAGNESIUM CHLORIDE\SODIUM CHLORIDE\SODIUM LACTATE
     Indication: END STAGE RENAL DISEASE
     Dosage: 4 CYCLES OF 2100ML
     Route: 033
     Dates: start: 201712
  6. FUROSEMIDE. [Concomitant]
     Active Substance: FUROSEMIDE
  7. TACROLIMUS. [Concomitant]
     Active Substance: TACROLIMUS
  8. SODIUM BICARBONATE. [Concomitant]
     Active Substance: SODIUM BICARBONATE
  9. ASPRIN [Concomitant]
     Active Substance: ASPIRIN
  10. MAGNESIUM OXIDE. [Concomitant]
     Active Substance: MAGNESIUM OXIDE
  11. METOPROLOL. [Concomitant]
     Active Substance: METOPROLOL

REACTIONS (2)
  - Fluid overload [Recovered/Resolved]
  - Treatment noncompliance [Recovered/Resolved]
